FAERS Safety Report 18260525 (Version 1)
Quarter: 2020Q3

REPORT INFORMATION
  Report Type: Spontaneous
  Country: FR (occurrence: FR)
  Receive Date: 20200914
  Receipt Date: 20200914
  Transmission Date: 20201103
  Serious: Yes (Hospitalization)
  Sender: FDA-Public Use
  Company Number: FR-TEVA-2020-FR-1825744

PATIENT
  Age: 45 Year
  Sex: Male
  Weight: 70 kg

DRUGS (5)
  1. PROTEINES (HYDROLYSAT DE) [Concomitant]
  2. ESCITALOPRAM [Suspect]
     Active Substance: ESCITALOPRAM OXALATE
     Indication: DEPRESSIVE SYMPTOM
     Dosage: 10 MG
     Route: 048
     Dates: start: 202003
  3. LOXAPAC 25 MG, COMPRIME PELLICULE [Suspect]
     Active Substance: LOXAPINE SUCCINATE
     Indication: MENTAL DISORDER
     Dosage: 25 MG
     Route: 048
     Dates: start: 20200716
  4. PREGABALINE [Concomitant]
     Active Substance: PREGABALIN
     Dosage: 150 MG
  5. SKENAN [Concomitant]
     Active Substance: MORPHINE SULFATE
     Dosage: 20 MG

REACTIONS (1)
  - Reversible cerebral vasoconstriction syndrome [Recovered/Resolved]

NARRATIVE: CASE EVENT DATE: 20200803
